FAERS Safety Report 20225015 (Version 3)
Quarter: 2022Q2

REPORT INFORMATION
  Report Type: Report from Study
  Country: CL (occurrence: CL)
  Receive Date: 20211223
  Receipt Date: 20220411
  Transmission Date: 20220720
  Serious: Yes (Other)
  Sender: FDA-Public Use
  Company Number: CL-EXELIXIS-XL18421047452

PATIENT
  Age: 66 Year
  Sex: Female
  Weight: 65 kg

DRUGS (7)
  1. IPILIMUMAB [Suspect]
     Active Substance: IPILIMUMAB
     Indication: Metastatic renal cell carcinoma
     Dosage: 1 MG/KG, Q3WEEKS, 4 DOSES
     Route: 042
     Dates: start: 20210303, end: 20210505
  2. CABOZANTINIB [Suspect]
     Active Substance: CABOZANTINIB
     Indication: Metastatic renal cell carcinoma
     Dosage: 40 MILLIGRAM, QD
     Route: 065
     Dates: start: 20210303
  3. METFORMIN [Concomitant]
     Active Substance: METFORMIN HYDROCHLORIDE
     Indication: Product used for unknown indication
  4. PREDNISONE ACETATE [Concomitant]
     Active Substance: PREDNISONE ACETATE
     Indication: Product used for unknown indication
     Dosage: UNK
     Route: 065
  5. OMEPRAZOLE SODIUM [Concomitant]
     Active Substance: OMEPRAZOLE SODIUM
     Indication: Product used for unknown indication
     Dosage: UNK
     Route: 065
  6. LEVOTHYROXINE SODIUM [Concomitant]
     Active Substance: LEVOTHYROXINE SODIUM
     Indication: Product used for unknown indication
     Dosage: UNK
     Route: 065
  7. ENALAPRIL MALEATE [Concomitant]
     Active Substance: ENALAPRIL MALEATE
     Indication: Product used for unknown indication
     Dosage: UNK
     Route: 065

REACTIONS (1)
  - Conjunctivitis [Recovered/Resolved]

NARRATIVE: CASE EVENT DATE: 20211110
